FAERS Safety Report 20119218 (Version 1)
Quarter: 2021Q4

REPORT INFORMATION
  Report Type: Other
  Country: None (occurrence: SA)
  Receive Date: 20211126
  Receipt Date: 20211126
  Transmission Date: 20220303
  Serious: Yes (Death, Hospitalization)
  Sender: FDA-Public Use
  Company Number: SA-BIOLOGICAL E. LTD-2122369

PATIENT
  Age: 25 Year
  Sex: Male
  Weight: 0.75 kg

DRUGS (2)
  1. DAPTOMYCIN [Suspect]
     Active Substance: DAPTOMYCIN
     Indication: Stenotrophomonas infection
     Route: 042
  2. LEVOFLOXACIN [Concomitant]
     Active Substance: LEVOFLOXACIN
     Route: 065

REACTIONS (3)
  - Hepatotoxicity [Fatal]
  - Disseminated intravascular coagulation [Fatal]
  - Off label use [Fatal]
